FAERS Safety Report 15681066 (Version 1)
Quarter: 2018Q4

REPORT INFORMATION
  Report Type: Spontaneous
  Country: CN (occurrence: CN)
  Receive Date: 20181203
  Receipt Date: 20181203
  Transmission Date: 20190205
  Serious: Yes (Hospitalization, Other)
  Sender: FDA-Public Use
  Company Number: CN-GLAXOSMITHKLINE-CN2018GSK215171

PATIENT
  Sex: Male

DRUGS (2)
  1. FLIXOTIDE [Suspect]
     Active Substance: FLUTICASONE PROPIONATE
     Indication: ASTHMA
     Dosage: UNK UNK, Z
     Route: 055
     Dates: start: 201809
  2. MONTELUKAST SODIUM. [Suspect]
     Active Substance: MONTELUKAST SODIUM
     Indication: ASTHMA
     Dosage: UNK UNK, Z
     Route: 048
     Dates: start: 201809

REACTIONS (10)
  - Intussusception [Recovered/Resolved]
  - Product use issue [Unknown]
  - Cough [Unknown]
  - Dyspnoea [Unknown]
  - Product administered to patient of inappropriate age [Unknown]
  - Overdose [Unknown]
  - Nasopharyngitis [Recovered/Resolved]
  - Disease recurrence [Unknown]
  - Abdominal discomfort [Unknown]
  - Enteritis [Recovered/Resolved]

NARRATIVE: CASE EVENT DATE: 201810
